FAERS Safety Report 10195710 (Version 1)
Quarter: 2014Q2

REPORT INFORMATION
  Report Type: Spontaneous
  Country: FR (occurrence: FR)
  Receive Date: 20140527
  Receipt Date: 20140527
  Transmission Date: 20141212
  Serious: Yes (Hospitalization)
  Sender: FDA-Public Use
  Company Number: FR-ASTRAZENECA-2014SE35812

PATIENT
  Age: 77 Year
  Sex: Male

DRUGS (2)
  1. BRILIQUE [Suspect]
     Indication: MYOCARDIAL INFARCTION
     Route: 048
  2. PROFENID [Interacting]
     Dosage: ONCE/SINGLE ADMINISTRATION
     Route: 030

REACTIONS (4)
  - Drug interaction [Recovered/Resolved]
  - Malaise [Recovered/Resolved]
  - Loss of consciousness [Recovered/Resolved]
  - Injection site haematoma [Recovered/Resolved]
